FAERS Safety Report 12088728 (Version 5)
Quarter: 2017Q4

REPORT INFORMATION
  Report Type: Spontaneous
  Country: FR (occurrence: FR)
  Receive Date: 20160218
  Receipt Date: 20171011
  Transmission Date: 20180320
  Serious: Yes (Other)
  Sender: FDA-Public Use
  Company Number: FR-SUN PHARMACEUTICAL INDUSTRIES LTD-2016R1-111620

PATIENT
  Age: 68 Year
  Sex: Female

DRUGS (1)
  1. GEMCITABINE [Suspect]
     Active Substance: GEMCITABINE\GEMCITABINE HYDROCHLORIDE
     Indication: ADENOCARCINOMA PANCREAS
     Dosage: UNK
     Route: 065

REACTIONS (8)
  - Oedema peripheral [Recovered/Resolved]
  - Renal impairment [Recovering/Resolving]
  - Pericardial effusion [Recovering/Resolving]
  - Hypertension [Recovered/Resolved]
  - Thrombocytopenia [Recovered/Resolved]
  - Blood lactate dehydrogenase increased [Recovered/Resolved]
  - Thrombotic microangiopathy [Recovered/Resolved]
  - Normochromic normocytic anaemia [Recovered/Resolved]
